FAERS Safety Report 16837665 (Version 1)
Quarter: 2019Q3

REPORT INFORMATION
  Report Type: Spontaneous
  Country: JP (occurrence: JP)
  Receive Date: 20190923
  Receipt Date: 20190923
  Transmission Date: 20191005
  Serious: Yes (Hospitalization)
  Sender: FDA-Public Use
  Company Number: JP-TEVA-2019-JP-006004J

PATIENT
  Age: 59 Year
  Sex: Male

DRUGS (1)
  1. GLIMEPIRIDE TABLET 1MG ^TYK^ [Suspect]
     Active Substance: GLIMEPIRIDE
     Indication: PRODUCT USED FOR UNKNOWN INDICATION
     Route: 065
     Dates: start: 201310

REACTIONS (1)
  - Drug-induced liver injury [Unknown]
